FAERS Safety Report 5587141-0 (Version None)
Quarter: 2008Q1

REPORT INFORMATION
  Report Type: 
  Country: None (occurrence: None)
  Receive Date: 20080110
  Receipt Date: 20080108
  Transmission Date: 20080703
  Serious: Yes (Life-Threatening, Hospitalization, Disabling, Other)
  Sender: FDA-Public Use
  Company Number: US-ASTRAZENECA-2007UW27928

PATIENT
  Age: 54 Year
  Sex: Female

DRUGS (12)
  1. CRESTOR [Suspect]
     Indication: BLOOD CHOLESTEROL INCREASED
     Route: 048
     Dates: start: 20040430, end: 20071126
  2. NEURONTIN [Concomitant]
     Route: 048
  3. NEXIUM [Concomitant]
  4. LISINOPRIL [Concomitant]
  5. LASIX [Concomitant]
  6. AVAPRO [Concomitant]
  7. LANTUS [Concomitant]
  8. LUMIGAN [Concomitant]
     Route: 058
  9. COSOPT [Concomitant]
  10. CUBICIN [Concomitant]
     Indication: CELLULITIS
     Route: 042
     Dates: start: 20071116
  11. CEFTRIAXONE [Concomitant]
     Indication: CELLULITIS
     Route: 042
     Dates: start: 20071116
  12. NOVOLIN 50/50 [Concomitant]
     Route: 058

REACTIONS (5)
  - BLOOD CREATINE PHOSPHOKINASE INCREASED [None]
  - MUSCULAR WEAKNESS [None]
  - PROTEINURIA [None]
  - RHABDOMYOLYSIS [None]
  - URINE COLOUR ABNORMAL [None]
